FAERS Safety Report 4505194-5 (Version None)
Quarter: 2004Q4

REPORT INFORMATION
  Report Type: 
  Country: None (occurrence: None)
  Receive Date: 20041116
  Receipt Date: 20041104
  Transmission Date: 20050328
  Serious: Yes (Other)
  Sender: FDA-Public Use
  Company Number: 2004079052

PATIENT
  Age: 79 Year
  Sex: Female

DRUGS (3)
  1. VISINE TEARS (GLYCERIN, HYDROXYPROPYLMETHYLCELLUOSE, POLYTHYLENE GLYCO [Suspect]
     Indication: DRY EYE
     Dosage: SEE IMAGE
     Route: 047
     Dates: end: 20041011
  2. VISINE TEARS (GLYCERIN, HYDROXYPROPYLMETHYLCELLUOSE, POLYTHYLENE GLYCO [Suspect]
     Indication: DRY EYE
     Dosage: SEE IMAGE
     Route: 047
     Dates: start: 20051031
  3. VISINE TEARS (GLYCERIN, HYDROXYPROPYLMETHYLCELLULOSE, POLYETHYLENE, GL [Suspect]

REACTIONS (2)
  - BURNING SENSATION [None]
  - EYE IRRITATION [None]
